FAERS Safety Report 4667672-8 (Version None)
Quarter: 2005Q2

REPORT INFORMATION
  Report Type: 
  Country: None (occurrence: None)
  Receive Date: 20050519
  Receipt Date: 20050519
  Transmission Date: 20051028
  Serious: Yes (Hospitalization)
  Sender: FDA-Public Use
  Company Number: None

PATIENT
  Sex: Male
  Weight: 13 kg

DRUGS (6)
  1. PHENOBARBITAL 40 MG [Suspect]
     Indication: CONVULSION
     Dosage: 40 MG BID ORAL
     Route: 048
     Dates: start: 20041215, end: 20050111
  2. ZITHROMAX [Concomitant]
  3. AUGMENTIN '125' [Concomitant]
  4. TYLENOL (CAPLET) [Concomitant]
  5. MOTRIN [Concomitant]
  6. CLARITIN [Concomitant]

REACTIONS (1)
  - STEVENS-JOHNSON SYNDROME [None]
